FAERS Safety Report 21515077 (Version 1)
Quarter: 2022Q4

REPORT INFORMATION
  Report Type: Spontaneous
  Country: FR (occurrence: FR)
  Receive Date: 20221027
  Receipt Date: 20221027
  Transmission Date: 20230112
  Serious: Yes (Life-Threatening, Hospitalization)
  Sender: FDA-Public Use
  Company Number: None

PATIENT
  Age: 77 Year
  Sex: Female
  Weight: 50 kg

DRUGS (6)
  1. DOXORUBICIN [Suspect]
     Active Substance: DOXORUBICIN
     Indication: Endometrial cancer
     Dosage: THERAPY DURATION : 1 DAYS
     Route: 065
     Dates: start: 20220901, end: 20220901
  2. PREDNISOLONE SODIUM METAZOATE [Suspect]
     Active Substance: PREDNISOLONE SODIUM METAZOATE
     Indication: Endometrial cancer
     Dosage: UNIT DOSE : 40 MG, FREQUENCY TIME : 1 DAYS, THERAPY DURATION : 6 DAYS
     Route: 065
     Dates: start: 20220901, end: 20220907
  3. FILGRASTIM [Concomitant]
     Active Substance: FILGRASTIM
     Indication: Product used for unknown indication
     Dosage: UNIT DOSE : 1 DOSAGE FORMS,FREQUENCY TIME : 1 DAYS,  THERAPY DURATION : 5 DAYS
     Dates: start: 20220902, end: 20220907
  4. CALCIUM PHOSPHATE, DIBASIC, ANHYDROUS\MAGNESIUM GLYCEROPHOSPHATE\PHOSP [Concomitant]
     Active Substance: CALCIUM PHOSPHATE, DIBASIC, ANHYDROUS\MAGNESIUM GLYCEROPHOSPHATE\PHOSPHORIC ACID\SODIUM PHOSPHATE, D
     Indication: Product used for unknown indication
     Dosage: UNIT DOSE : 100 GTT, THERAPY START DATE  AND  THERAPY END DATE : ASKED BUT UNKNOWN, FREQUENCY TIME :
  5. ESOMEPRAZOLE [Concomitant]
     Active Substance: ESOMEPRAZOLE
     Indication: Product used for unknown indication
     Dosage: THERAPY START DATE  AND  THERAPY END DATE : ASKED BUT UNKNOWN, UNIT DOSE : 20 MG,FREQUENCY TIME : 1
  6. ERYTHROPOIETIN [Concomitant]
     Active Substance: ERYTHROPOIETIN
     Indication: Product used for unknown indication
     Dosage: STRENGTH : 20,000 IU/1 ML, THERAPY START DATE  AND  THERAPY END DATE : ASKED BUT UNKNOWN, UNIT DOSE

REACTIONS (2)
  - Febrile bone marrow aplasia [Not Recovered/Not Resolved]
  - Septic shock [Recovered/Resolved]

NARRATIVE: CASE EVENT DATE: 20220906
